FAERS Safety Report 22050046 (Version 1)
Quarter: 2023Q1

REPORT INFORMATION
  Report Type: Spontaneous
  Country: US (occurrence: US)
  Receive Date: 20230301
  Receipt Date: 20230301
  Transmission Date: 20230417
  Serious: No
  Sender: FDA-Public Use
  Company Number: US-SANOFI-01506877

PATIENT
  Age: 72 Year
  Sex: Male

DRUGS (1)
  1. LANTUS [Suspect]
     Active Substance: INSULIN GLARGINE
     Indication: Type 1 diabetes mellitus
     Dosage: 50 U, QD

REACTIONS (6)
  - Neuralgia [Unknown]
  - Pain [Unknown]
  - Blood glucose abnormal [Unknown]
  - Intentional product misuse [Unknown]
  - Product storage error [Unknown]
  - Therapeutic response decreased [Unknown]
